FAERS Safety Report 19621458 (Version 1)
Quarter: 2021Q3

REPORT INFORMATION
  Report Type: Spontaneous
  Country: JP (occurrence: JP)
  Receive Date: 20210728
  Receipt Date: 20210728
  Transmission Date: 20211014
  Serious: Yes (Death, Hospitalization)
  Sender: FDA-Public Use
  Company Number: JP-TEVA-2021-JP-1935727

PATIENT
  Age: 64 Year
  Sex: Male

DRUGS (6)
  1. PSL (PREDNISOLONE) [Suspect]
     Active Substance: PREDNISOLONE
     Dosage: 50 MILLIGRAM DAILY;
     Route: 065
  2. TAC [Suspect]
     Active Substance: TRIAMCINOLONE ACETONIDE
     Indication: CHOLANGITIS SCLEROSING
     Dosage: 2 MILLIGRAM DAILY;
     Route: 065
  3. TAC [Suspect]
     Active Substance: TRIAMCINOLONE ACETONIDE
     Dosage: 4 MILLIGRAM DAILY;
     Route: 065
  4. MMF [Suspect]
     Active Substance: MYCOPHENOLATE MOFETIL
     Indication: CHOLANGITIS SCLEROSING
     Dosage: 2000 MILLIGRAM DAILY;
     Route: 065
  5. PSL (PREDNISOLONE) [Suspect]
     Active Substance: PREDNISOLONE
     Indication: CHOLANGITIS SCLEROSING
     Dosage: 60 MILLIGRAM DAILY; 1 MG/KG DAILY
     Route: 065
  6. NIVOLUMAB [Suspect]
     Active Substance: NIVOLUMAB
     Indication: LUNG SQUAMOUS CELL CARCINOMA STAGE IV
     Dosage: 240MG/BODY
     Route: 065

REACTIONS (9)
  - Cytomegalovirus infection [Unknown]
  - Biliary obstruction [Unknown]
  - Cholangitis sclerosing [Fatal]
  - Hepatic necrosis [Unknown]
  - Drug ineffective [Unknown]
  - Hepatic failure [Fatal]
  - Fungal infection [Unknown]
  - Bacterial infection [Unknown]
  - Hepatitis acute [Unknown]
